FAERS Safety Report 11744705 (Version 1)
Quarter: 2015Q4

REPORT INFORMATION
  Report Type: Spontaneous
  Country: US (occurrence: US)
  Receive Date: 20151116
  Receipt Date: 20151116
  Transmission Date: 20160304
  Serious: Yes (Hospitalization, Other)
  Sender: FDA-Public Use
  Company Number: US-DSJP-DSU-2015-118058

PATIENT

DRUGS (2)
  1. BENICAR HCT [Suspect]
     Active Substance: HYDROCHLOROTHIAZIDE\OLMESARTAN MEDOXOMIL
     Indication: HYPERTENSION
     Dosage: 40/25 MG, QD
     Dates: start: 2003
  2. BENICAR [Suspect]
     Active Substance: OLMESARTAN MEDOXOMIL
     Indication: PRODUCT USED FOR UNKNOWN INDICATION
     Dosage: UNK

REACTIONS (9)
  - Acute kidney injury [Recovered/Resolved]
  - Cholelithiasis [Unknown]
  - Malabsorption [Unknown]
  - Polyuria [Unknown]
  - Gastritis [Unknown]
  - Renal cyst [Unknown]
  - Pancreatitis acute [Unknown]
  - Hiatus hernia [Unknown]
  - Ileus [Unknown]

NARRATIVE: CASE EVENT DATE: 201312
